FAERS Safety Report 23167073 (Version 3)
Quarter: 2025Q2

REPORT INFORMATION
  Report Type: Spontaneous
  Country: JP (occurrence: JP)
  Receive Date: 20231109
  Receipt Date: 20250620
  Transmission Date: 20250717
  Serious: Yes (Hospitalization)
  Sender: ORGANON
  Company Number: JP-MEIJISEIKA-202305325_P_1

PATIENT
  Sex: Female

DRUGS (6)
  1. REFLEX [Suspect]
     Active Substance: MIRTAZAPINE
     Indication: Depression
     Route: 048
  2. OLANZAPINE [Suspect]
     Active Substance: OLANZAPINE
     Indication: Depression
     Route: 048
  3. VALPROATE SODIUM [Concomitant]
     Active Substance: VALPROATE SODIUM
     Indication: Depression
     Route: 065
  4. RAMELTEON [Concomitant]
     Active Substance: RAMELTEON
     Indication: Depression
     Route: 065
  5. METHYLCOBALAMIN [Concomitant]
     Active Substance: METHYLCOBALAMIN
     Route: 065
  6. VENLAFAXINE HYDROCHLORIDE [Concomitant]
     Active Substance: VENLAFAXINE HYDROCHLORIDE
     Indication: Depression
     Route: 065

REACTIONS (3)
  - Hypoglycaemia [Recovered/Resolved]
  - Serotonin syndrome [Recovered/Resolved]
  - Overdose [Unknown]
